FAERS Safety Report 14421056 (Version 3)
Quarter: 2021Q4

REPORT INFORMATION
  Report Type: Spontaneous
  Country: JP (occurrence: JP)
  Receive Date: 20180122
  Receipt Date: 20211014
  Transmission Date: 20220303
  Serious: Yes (Death, Life-Threatening, Disabling, Other)
  Sender: FDA-Public Use
  Company Number: JP-GE HEALTHCARE LIFE SCIENCES-OMPQ-NO-0903S-0224

PATIENT

DRUGS (4)
  1. OMNIPAQUE [Suspect]
     Active Substance: IOHEXOL
     Indication: Hepatic function abnormal
     Dosage: UNK, SINGLE
     Route: 041
     Dates: start: 20090322, end: 20090322
  2. OMNIPAQUE [Suspect]
     Active Substance: IOHEXOL
     Indication: Computerised tomogram
  3. CALCIUM CHLORIDE\MAGNESIUM CHLORIDE\POTASSIUM CHLORIDE\SODIUM ACETATE\ [Concomitant]
     Active Substance: CALCIUM CHLORIDE\MAGNESIUM CHLORIDE\POTASSIUM CHLORIDE\SODIUM ACETATE\SODIUM CHLORIDE
  4. SOLITA-T1 [Concomitant]
     Dosage: UNK
     Dates: start: 20090322, end: 20090322

REACTIONS (3)
  - Hypoxic-ischaemic encephalopathy [Fatal]
  - Anaphylactoid shock [Fatal]
  - Nervous system disorder [Recovered/Resolved with Sequelae]

NARRATIVE: CASE EVENT DATE: 20090322
